FAERS Safety Report 4398115-X (Version None)
Quarter: 2004Q3

REPORT INFORMATION
  Report Type: 
  Country: None (occurrence: None)
  Receive Date: 20040713
  Receipt Date: 20040628
  Transmission Date: 20050211
  Serious: Yes (Hospitalization)
  Sender: FDA-Public Use
  Company Number: 200528

PATIENT
  Age: 42 Year
  Sex: Female
  Weight: 59.4212 kg

DRUGS (2)
  1. AVONEX [Suspect]
     Indication: MULTIPLE SCLEROSIS
     Dosage: 30 MCG QW IM
     Route: 030
     Dates: start: 20030101, end: 20030101
  2. AVONEX [Suspect]
     Indication: MULTIPLE SCLEROSIS
     Dosage: 30 MCG QW IM
     Route: 030
     Dates: start: 20030101

REACTIONS (8)
  - BALANCE DISORDER [None]
  - BUNDLE BRANCH BLOCK LEFT [None]
  - CARDIOMYOPATHY [None]
  - FALL [None]
  - HYPERTENSION [None]
  - INFLUENZA LIKE ILLNESS [None]
  - JOINT DISLOCATION PATHOLOGICAL [None]
  - SOFT TISSUE INJURY [None]
